FAERS Safety Report 19891231 (Version 13)
Quarter: 2024Q1

REPORT INFORMATION
  Report Type: Report from Study
  Country: CO (occurrence: CO)
  Receive Date: 20210928
  Receipt Date: 20240327
  Transmission Date: 20240409
  Serious: Yes (Other)
  Sender: FDA-Public Use
  Company Number: CO-SHIRE-CO202009165AA

PATIENT
  Age: 46 Year
  Sex: Male
  Weight: 67 kg

DRUGS (3)
  1. VELAGLUCERASE ALFA [Suspect]
     Active Substance: VELAGLUCERASE ALFA
     Indication: Gaucher^s disease
     Dosage: 400 INTERNATIONAL UNIT
     Route: 065
     Dates: start: 20180426
  2. VELAGLUCERASE ALFA [Suspect]
     Active Substance: VELAGLUCERASE ALFA
     Dosage: 2800 INTERNATIONAL UNIT
     Route: 042
  3. VELAGLUCERASE ALFA [Suspect]
     Active Substance: VELAGLUCERASE ALFA
     Dosage: 2800 INTERNATIONAL UNIT, 2/MONTH
     Route: 042

REACTIONS (12)
  - COVID-19 [Unknown]
  - Treatment noncompliance [Unknown]
  - Weight increased [Unknown]
  - Body height increased [Unknown]
  - Influenza like illness [Recovering/Resolving]
  - Influenza [Recovering/Resolving]
  - Respiratory symptom [Not Recovered/Not Resolved]
  - Drug ineffective [Unknown]
  - Product prescribing issue [Recovering/Resolving]
  - Product prescribing error [Unknown]
  - Incorrect dose administered [Unknown]
  - Inappropriate schedule of product administration [Unknown]

NARRATIVE: CASE EVENT DATE: 20200306
